FAERS Safety Report 10151803 (Version 2)
Quarter: 2014Q2

REPORT INFORMATION
  Report Type: Spontaneous
  Country: JP (occurrence: JP)
  Receive Date: 20140505
  Receipt Date: 20140529
  Transmission Date: 20141212
  Serious: Yes (Other)
  Sender: FDA-Public Use
  Company Number: JP-BRISTOL-MYERS SQUIBB COMPANY-20694493

PATIENT
  Age: 71 Year
  Sex: Male

DRUGS (2)
  1. ABILIFY DISCMELT TABS [Suspect]
     Indication: SCHIZOPHRENIA
     Dosage: 18MG(28MY-26JUN,18-28JUL,27NV-18DEC13:21MG(29JL-23SP13)?24MG(24SP-26NV13):15MG(19D13-6MR14):12MG-OG
     Route: 048
     Dates: start: 20130507
  2. AMLODIPINE BESYLATE [Concomitant]
     Dosage: DISPERSABLE TABS
     Route: 048
     Dates: start: 20130514

REACTIONS (2)
  - Pneumonia aspiration [Recovered/Resolved]
  - Parkinsonism [Recovering/Resolving]
